FAERS Safety Report 10731752 (Version 3)
Quarter: 2015Q1

REPORT INFORMATION
  Report Type: Spontaneous
  Country: GB (occurrence: GB)
  Receive Date: 20150123
  Receipt Date: 20150302
  Transmission Date: 20150721
  Serious: Yes (Life-Threatening, Hospitalization, Disabling, Other)
  Sender: FDA-Public Use
  Company Number: GB-ACCORD-028133

PATIENT
  Age: 15 Year
  Sex: Female
  Weight: 65 kg

DRUGS (10)
  1. METHOTREXATE [Suspect]
     Active Substance: METHOTREXATE
     Indication: PRODUCT USED FOR UNKNOWN INDICATION
     Dates: start: 20140529
  2. ONDANSETRON [Concomitant]
     Active Substance: ONDANSETRON
  3. MEPACT [Suspect]
     Active Substance: MIFAMURTIDE
     Indication: OSTEOSARCOMA
     Dosage: 2MG/M2 = 3.52MG
     Route: 042
     Dates: start: 20140602, end: 20140606
  4. ORAMORPH SR SUSTAINED RELEASE [Concomitant]
     Active Substance: MORPHINE SULFATE
  5. CISPLATIN. [Concomitant]
     Active Substance: CISPLATIN
  6. NORETHISTERONE [Concomitant]
     Active Substance: NORETHINDRONE
  7. MAGNESIUM GLYCEROPHOSPHATE [Concomitant]
     Active Substance: MAGNESIUM GLYCEROPHOSPHATE
  8. METOCLOPRAMIDE. [Concomitant]
     Active Substance: METOCLOPRAMIDE
  9. MORPHINE [Concomitant]
     Active Substance: MORPHINE
  10. DOXORUBICIN [Concomitant]
     Active Substance: DOXORUBICIN

REACTIONS (2)
  - Encephalopathy [Recovered/Resolved]
  - Nervous system disorder [Recovered/Resolved]

NARRATIVE: CASE EVENT DATE: 20140606
